FAERS Safety Report 9558850 (Version 1)
Quarter: 2013Q3

REPORT INFORMATION
  Report Type: Spontaneous
  Country: US (occurrence: US)
  Receive Date: 20130926
  Receipt Date: 20130926
  Transmission Date: 20140515
  Serious: Yes (Death, Hospitalization)
  Sender: FDA-Public Use
  Company Number: US-JNJFOC-20130912677

PATIENT
  Age: 12 Year
  Sex: Male

DRUGS (1)
  1. MAXIMUM STRENGTH TYLENOL SORE THROAT [Suspect]
     Indication: OROPHARYNGEAL PAIN
     Route: 065

REACTIONS (4)
  - Brain death [Fatal]
  - Toxicity to various agents [Fatal]
  - Haematemesis [Unknown]
  - Listless [Unknown]
